FAERS Safety Report 9723884 (Version 1)
Quarter: 2013Q4

REPORT INFORMATION
  Report Type: Spontaneous
  Country: PL (occurrence: PL)
  Receive Date: 20131202
  Receipt Date: 20131202
  Transmission Date: 20140711
  Serious: Yes (Other)
  Sender: FDA-Public Use
  Company Number: PL-IPSEN BIOPHARMACEUTICALS, INC.-2013-5276

PATIENT
  Sex: 0

DRUGS (2)
  1. SOMATULINE AUTOGEL [Suspect]
     Indication: ACROMEGALY
     Dosage: 120 MG
     Route: 065
  2. SANDOSTATIN [Suspect]
     Indication: ACROMEGALY
     Dosage: NOT REPORTED
     Route: 065

REACTIONS (7)
  - Surgery [Unknown]
  - Arthralgia [Unknown]
  - Arthralgia [Unknown]
  - Arthralgia [Unknown]
  - Arthralgia [Unknown]
  - Pain in jaw [Unknown]
  - Disease progression [Unknown]
